FAERS Safety Report 7680339-7 (Version None)
Quarter: 2011Q3

REPORT INFORMATION
  Report Type: 
  Country: None (occurrence: None)
  Receive Date: 20110812
  Receipt Date: 20110802
  Transmission Date: 20111222
  Serious: Yes (Hospitalization)
  Sender: FDA-Public Use
  Company Number: US-VIIV HEALTHCARE LIMITED-B0692992A

PATIENT
  Age: 52 Year
  Sex: Male

DRUGS (24)
  1. RALTEGRAVIR POTASSIUM [Suspect]
     Indication: HIV INFECTION
     Route: 048
     Dates: start: 20101118
  2. CHLORPROMAZINE [Concomitant]
     Dates: start: 20100602
  3. BUPROPION HCL [Concomitant]
     Dates: start: 20061011
  4. ROSUVASTATIN [Concomitant]
     Dates: start: 20080610
  5. TADALAFIL [Concomitant]
     Dates: start: 20100806
  6. NEBIVOLOL HCL [Concomitant]
     Dates: start: 20091211
  7. OLMESARTAN MEDOXOMIL [Concomitant]
     Dates: start: 20091211
  8. MIRTAZAPINE [Concomitant]
     Dates: start: 20080303
  9. ADVAIR DISKUS 100/50 [Concomitant]
     Dates: start: 20080414
  10. OXYBUTYNIN [Concomitant]
     Dates: start: 20061011
  11. LEVOCETIRIZINE DIHYDROCHLORIDE [Concomitant]
     Dates: start: 20090202
  12. FENOFIBRATE [Concomitant]
     Dates: start: 20080610
  13. FLUTICASONE PROPIONATE [Concomitant]
  14. MARAVIROC [Suspect]
     Indication: HIV INFECTION
     Dosage: 600MG TWICE PER DAY
     Route: 048
     Dates: start: 20101118
  15. DECA-DURABOLIN [Concomitant]
     Dates: start: 20090202
  16. CLONIDINE [Concomitant]
     Dates: start: 20101019
  17. ESOMEPRAZOLE MAGNESIUM [Concomitant]
     Dates: start: 20080508
  18. PREGABALIN [Concomitant]
     Dates: start: 20071210
  19. ALBUTEROL [Concomitant]
     Dates: start: 20091211
  20. CEVIMELINE [Concomitant]
     Dates: start: 20080610
  21. ZOFRAN [Concomitant]
  22. ETRAVIRINE [Suspect]
     Indication: HIV INFECTION
     Route: 048
     Dates: start: 20101118
  23. LEVOTHYROXINE SODIUM [Concomitant]
     Dates: start: 20101019
  24. DEPO-TESTOSTERONE [Concomitant]
     Dates: start: 20101019

REACTIONS (2)
  - BLOOD CREATINE PHOSPHOKINASE INCREASED [None]
  - BLOOD POTASSIUM DECREASED [None]
